FAERS Safety Report 7981898-7 (Version None)
Quarter: 2011Q4

REPORT INFORMATION
  Report Type: 
  Country: None (occurrence: None)
  Receive Date: 20111215
  Receipt Date: 20111208
  Transmission Date: 20120403
  Serious: Yes (Other)
  Sender: FDA-Public Use
  Company Number: JP-JNJFOC-20111202294

PATIENT
  Age: 29 Year
  Sex: Male

DRUGS (6)
  1. PREDNISOLONE [Suspect]
     Indication: PROPHYLAXIS
     Route: 048
  2. RITONAVIR [Suspect]
     Indication: PROGRESSIVE MULTIFOCAL LEUKOENCEPHALOPATHY
     Route: 065
  3. PREDNISOLONE [Suspect]
     Route: 048
  4. PREZISTA [Suspect]
     Indication: PROGRESSIVE MULTIFOCAL LEUKOENCEPHALOPATHY
     Route: 048
  5. METHYLPREDNISOLONE [Suspect]
     Indication: IMMUNE RECONSTITUTION SYNDROME
     Route: 065
  6. TRUVADA [Suspect]
     Indication: PROPHYLAXIS
     Route: 048

REACTIONS (3)
  - MUSCULAR WEAKNESS [None]
  - TONGUE PARALYSIS [None]
  - HYPOAESTHESIA [None]
